FAERS Safety Report 8922551 (Version 2)
Quarter: 2013Q2

REPORT INFORMATION
  Report Type: Spontaneous
  Country: US (occurrence: US)
  Receive Date: 20121126
  Receipt Date: 20130523
  Transmission Date: 20140414
  Serious: No
  Sender: FDA-Public Use
  Company Number: US-009507513-1211USA002488

PATIENT
  Age: 27 Year
  Sex: Female
  Weight: 62.59 kg

DRUGS (1)
  1. NUVARING [Suspect]
     Indication: CONTRACEPTION
     Dosage: 3 WEEKS IN, 1 WEEK OUT
     Route: 067
     Dates: start: 20100626, end: 201204

REACTIONS (3)
  - Weight decreased [Unknown]
  - Menstruation irregular [Unknown]
  - Alopecia [Unknown]
